FAERS Safety Report 21810030 (Version 1)
Quarter: 2022Q4

REPORT INFORMATION
  Report Type: Spontaneous
  Country: US (occurrence: None)
  Receive Date: 20221230
  Receipt Date: 20221230
  Transmission Date: 20230113
  Serious: Yes (Hospitalization)
  Sender: FDA-Public Use
  Company Number: None

PATIENT
  Age: 63 Year
  Sex: Male
  Weight: 97.2 kg

DRUGS (1)
  1. BEBTELOVIMAB [Suspect]
     Active Substance: BEBTELOVIMAB
     Indication: COVID-19
     Dosage: FREQUENCY : ONCE;?
     Route: 041
     Dates: start: 20221102, end: 20221102

REACTIONS (7)
  - Hyperhidrosis [None]
  - Dizziness [None]
  - Hypotension [None]
  - Infusion related reaction [None]
  - Presyncope [None]
  - Dehydration [None]
  - Hypoglycaemia [None]

NARRATIVE: CASE EVENT DATE: 20221102
